FAERS Safety Report 19165467 (Version 2)
Quarter: 2021Q2

REPORT INFORMATION
  Report Type: Spontaneous
  Country: US (occurrence: US)
  Receive Date: 20210421
  Receipt Date: 20210526
  Transmission Date: 20210717
  Serious: No
  Sender: FDA-Public Use
  Company Number: US-BAUSCH-BL-2021-010211

PATIENT
  Age: 17 Year
  Sex: Male
  Weight: 66.28 kg

DRUGS (1)
  1. RETIN?A [Suspect]
     Active Substance: TRETINOIN
     Indication: ACNE
     Dosage: ONCE DAILY AT NIGHT TO AFFECTED AREAS ON HIS FACE
     Route: 061
     Dates: start: 20210315, end: 20210317

REACTIONS (4)
  - Skin exfoliation [Recovered/Resolved]
  - Erythema [Recovered/Resolved]
  - Skin tightness [Recovered/Resolved]
  - Incorrect dose administered [Unknown]

NARRATIVE: CASE EVENT DATE: 20210316
